FAERS Safety Report 9175688 (Version 2)
Quarter: 2012Q4

REPORT INFORMATION
  Report Type: 
  Country: JP (occurrence: JP)
  Receive Date: 20120912
  Receipt Date: 20121217
  Transmission Date: 20130627
  Serious: Yes (Hospitalization, Other)
  Sender: FDA-Public Use
  Company Number: JP-RB-044173-12

PATIENT
  Age: 63 None
  Sex: Male

DRUGS (3)
  1. LEPETAN [Suspect]
     Indication: SEDATION
     Route: 042
     Dates: start: 20111214
  2. SILECE [Suspect]
     Indication: SEDATION
     Route: 042
     Dates: start: 20111214, end: 20111214
  3. ROSUVASTATIN CALCIUM [Concomitant]
     Route: 065
     Dates: start: 20111213, end: 20111219

REACTIONS (4)
  - Hypercapnia [Recovered/Resolved]
  - Apnoea [None]
  - Sedation [None]
  - Pneumonia [None]
